FAERS Safety Report 4677659-7 (Version None)
Quarter: 2005Q2

REPORT INFORMATION
  Report Type: 
  Country: None (occurrence: None)
  Receive Date: 20050531
  Receipt Date: 20050519
  Transmission Date: 20051028
  Serious: Yes (Other)
  Sender: FDA-Public Use
  Company Number: US-BRISTOL-MYERS SQUIBB COMPANY-12982708

PATIENT
  Age: 81 Year

DRUGS (3)
  1. PARAPLATIN [Suspect]
     Indication: NON-SMALL CELL LUNG CANCER
     Route: 042
     Dates: start: 20050519, end: 20050519
  2. ANZEMET [Concomitant]
     Indication: PREMEDICATION
     Dates: start: 20050519, end: 20050519
  3. DECADRON [Concomitant]
     Indication: PREMEDICATION
     Dates: start: 20050519, end: 20050519

REACTIONS (6)
  - CHEST DISCOMFORT [None]
  - DYSPNOEA [None]
  - FLUSHING [None]
  - HYPOTENSION [None]
  - NAUSEA [None]
  - STARING [None]
